FAERS Safety Report 13516225 (Version 3)
Quarter: 2017Q2

REPORT INFORMATION
  Report Type: Spontaneous
  Country: IT (occurrence: IT)
  Receive Date: 20170505
  Receipt Date: 20170602
  Transmission Date: 20170830
  Serious: Yes (Other)
  Sender: FDA-Public Use
  Company Number: IT-009507513-1705ITA002601

PATIENT
  Age: 51 Year
  Sex: Male

DRUGS (3)
  1. MODERIBA [Suspect]
     Active Substance: RIBAVIRIN
     Indication: HEPATITIS C
     Dosage: 2 DOSE UNITS DAILY
     Route: 048
     Dates: start: 20170418, end: 20170419
  2. ZEPATIER [Suspect]
     Active Substance: ELBASVIR\GRAZOPREVIR
     Indication: HEPATITIS C
     Dosage: 1 DOSE UNIT DAILY (STRENGTH:50MG/100MG)
     Route: 048
     Dates: start: 20170419, end: 20170419
  3. REBETOL [Suspect]
     Active Substance: RIBAVIRIN
     Indication: HEPATITIS C
     Dosage: 200 MG DAILY
     Route: 048
     Dates: start: 20170418, end: 20170419

REACTIONS (4)
  - Tachycardia [Recovered/Resolved]
  - Bruxism [Recovered/Resolved]
  - Hyperhidrosis [Recovered/Resolved]
  - Hypertension [Recovered/Resolved]

NARRATIVE: CASE EVENT DATE: 20170419
